FAERS Safety Report 5918060-5 (Version None)
Quarter: 2008Q4

REPORT INFORMATION
  Report Type: 
  Country: None (occurrence: None)
  Receive Date: 20081014
  Receipt Date: 20081003
  Transmission Date: 20090506
  Serious: Yes (Other)
  Sender: FDA-Public Use
  Company Number: AR-JNJCH-2008051544

PATIENT
  Sex: Male
  Weight: 73 kg

DRUGS (4)
  1. DRAMAMINE [Suspect]
     Indication: MALAISE
     Route: 048
  2. INSULIN [Concomitant]
     Indication: DIABETES MELLITUS
     Dosage: TEXT:UNSPECIFIED
     Route: 058
     Dates: start: 19980101
  3. ATENOLOL [Concomitant]
     Indication: HYPERTENSION
     Dosage: TEXT:UNSPECIFIED
     Route: 048
  4. ENALAPRIL MALEATE [Concomitant]
     Indication: HYPERTENSION
     Dosage: TEXT:UNSPECIFIED
     Route: 048

REACTIONS (1)
  - BLOOD GLUCOSE INCREASED [None]
